FAERS Safety Report 8558326 (Version 2)
Quarter: 2013Q1

REPORT INFORMATION
  Report Type: Spontaneous
  Country: US (occurrence: US)
  Receive Date: 20120511
  Receipt Date: 20130329
  Transmission Date: 20140127
  Serious: Yes (Other)
  Sender: FDA-Public Use
  Company Number: US-GLAXOSMITHKLINE-A0960239A

PATIENT
  Age: 62 Year
  Sex: Female
  Weight: 59.1 kg

DRUGS (6)
  1. TYKERB [Suspect]
     Indication: BREAST CANCER
     Dosage: 1250MG PER DAY
     Route: 048
     Dates: start: 20111229, end: 201212
  2. AMBIEN [Suspect]
     Dosage: 5MG AS REQUIRED
     Route: 048
     Dates: start: 20120103
  3. NALTREXONE [Concomitant]
  4. AROMASIN [Concomitant]
  5. PECTIN [Concomitant]
  6. CEFTIN [Concomitant]

REACTIONS (14)
  - Respiratory tract infection [Unknown]
  - Dry skin [Not Recovered/Not Resolved]
  - Eyelid oedema [Recovered/Resolved]
  - Asthenia [Recovered/Resolved]
  - Pruritus generalised [Unknown]
  - Headache [Unknown]
  - Depression [Unknown]
  - Hand deformity [Unknown]
  - Finger deformity [Unknown]
  - Fatigue [Unknown]
  - Nausea [Unknown]
  - Chest pain [Not Recovered/Not Resolved]
  - Bronchitis [Not Recovered/Not Resolved]
  - Cough [Not Recovered/Not Resolved]
